FAERS Safety Report 6874051-1 (Version None)
Quarter: 2010Q3

REPORT INFORMATION
  Report Type: 
  Country: None (occurrence: None)
  Receive Date: 20100723
  Receipt Date: 20090423
  Transmission Date: 20110219
  Serious: No
  Sender: FDA-Public Use
  Company Number: US-PFIZER INC-2009206367

PATIENT
  Sex: Female
  Weight: 57.6 kg

DRUGS (2)
  1. CHANTIX [Suspect]
     Indication: SMOKING CESSATION THERAPY
     Dosage: 1 MG, 2X/DAY
     Dates: start: 20090326
  2. MOTRIN [Concomitant]
     Indication: MUSCLE SPASMS
     Dosage: UNK

REACTIONS (3)
  - DECREASED APPETITE [None]
  - INSOMNIA [None]
  - WEIGHT INCREASED [None]
